FAERS Safety Report 8312371-4 (Version None)
Quarter: 2012Q2

REPORT INFORMATION
  Report Type: 
  Country: None (occurrence: None)
  Receive Date: 20120425
  Receipt Date: 20120419
  Transmission Date: 20120825
  Serious: Yes (Hospitalization, Other)
  Sender: FDA-Public Use
  Company Number: GB-AMGEN-GBRSP2011011857

PATIENT
  Age: 34 Year
  Sex: Female
  Weight: 99.8 kg

DRUGS (9)
  1. DEXAMETHASONE [Suspect]
     Indication: PRODUCT USED FOR UNKNOWN INDICATION
     Dosage: 40 MG, QD
     Route: 048
     Dates: start: 20100905, end: 20101010
  2. LANSOPRAZOLE [Suspect]
     Indication: GASTROOESOPHAGEAL REFLUX PROPHYLAXIS
     Dosage: 30 MG, QD
     Route: 048
     Dates: start: 20100907, end: 20100928
  3. TRANEXAMIC ACID [Suspect]
     Indication: PRODUCT USED FOR UNKNOWN INDICATION
     Dosage: 1 DF, QID
     Route: 048
     Dates: start: 20100922, end: 20100928
  4. NPLATE [Suspect]
     Indication: IDIOPATHIC THROMBOCYTOPENIC PURPURA
     Dosage: 1 MUG/KG, UNK
     Route: 058
     Dates: start: 20100420, end: 20100920
  5. ANTI D [Concomitant]
     Dosage: UNK
  6. RITUXIMAB [Suspect]
     Indication: HAEMATOLOGY TEST ABNORMAL
     Dosage: 375 MG/M2, 2 TIMES/WK
     Route: 042
     Dates: start: 20100917, end: 20100924
  7. NORETHINDRONE [Concomitant]
     Dosage: 5 MG, TID
     Route: 048
     Dates: start: 20100922, end: 20100928
  8. VINCRISTINE [Concomitant]
     Dosage: UNK
  9. IMMUNE GLOBULIN (HUMAN) [Suspect]
     Indication: HAEMATOLOGY TEST ABNORMAL
     Dosage: 1000 MG/KG, UNK
     Route: 042
     Dates: start: 20100922, end: 20100923

REACTIONS (8)
  - PURPURA [None]
  - VAGINAL HAEMORRHAGE [None]
  - HAEMOGLOBIN DECREASED [None]
  - MELAENA [None]
  - RASH ERYTHEMATOUS [None]
  - HAEMORRHAGE [None]
  - RASH MACULO-PAPULAR [None]
  - RECTAL HAEMORRHAGE [None]
